FAERS Safety Report 4921004-6 (Version None)
Quarter: 2006Q1

REPORT INFORMATION
  Report Type: 
  Country: None (occurrence: None)
  Receive Date: 20060223
  Receipt Date: 20051017
  Transmission Date: 20060701
  Serious: Yes (Hospitalization)
  Sender: FDA-Public Use
  Company Number: US-MERCK-0510USA07711

PATIENT
  Age: 65 Year
  Sex: Female
  Weight: 73 kg

DRUGS (12)
  1. TOPROL-XL [Concomitant]
     Indication: HYPERTENSION
     Route: 065
     Dates: start: 20000101
  2. TOPROL-XL [Concomitant]
     Route: 065
     Dates: start: 20000101
  3. MAVIK [Concomitant]
     Indication: HYPERTENSION
     Route: 065
  4. COUMADIN [Concomitant]
     Indication: CARDIAC VALVE DISEASE
     Route: 065
     Dates: start: 20000101
  5. VIOXX [Suspect]
     Indication: OSTEOARTHRITIS
     Route: 048
     Dates: start: 20010101, end: 20040901
  6. INSULIN [Concomitant]
     Route: 065
  7. ZOCOR [Concomitant]
     Indication: BLOOD CHOLESTEROL INCREASED
     Route: 065
     Dates: start: 20000101
  8. LASIX [Concomitant]
     Route: 065
  9. SYNTHROID [Concomitant]
     Route: 065
  10. ZOLOFT [Concomitant]
     Route: 065
  11. ASPIRIN [Concomitant]
     Route: 065
     Dates: start: 20000101
  12. IRON (UNSPECIFIED) [Concomitant]
     Route: 065

REACTIONS (18)
  - ASTHENIA [None]
  - ATRIAL FIBRILLATION [None]
  - BRONCHOSPASM [None]
  - CORONARY ARTERY DISEASE [None]
  - CORONARY ARTERY SURGERY [None]
  - DIABETES MELLITUS INADEQUATE CONTROL [None]
  - DYSURIA [None]
  - FATIGUE [None]
  - HYPERCHOLESTEROLAEMIA [None]
  - HYPERGLYCAEMIA [None]
  - HYPOGLYCAEMIA [None]
  - LARGE CELL CARCINOMA OF THE RESPIRATORY TRACT STAGE UNSPECIFIED [None]
  - MYOCARDIAL INFARCTION [None]
  - OEDEMA PERIPHERAL [None]
  - PLEURAL EFFUSION [None]
  - POST PROCEDURAL COMPLICATION [None]
  - POSTOPERATIVE WOUND INFECTION [None]
  - RESPIRATORY FAILURE [None]
